FAERS Safety Report 7439196-6 (Version None)
Quarter: 2011Q2

REPORT INFORMATION
  Report Type: 
  Country: None (occurrence: None)
  Receive Date: 20110427
  Receipt Date: 20110421
  Transmission Date: 20111010
  Serious: Yes (Life-Threatening, Hospitalization, Other)
  Sender: FDA-Public Use
  Company Number: DE-JNJFOC-20110203227

PATIENT
  Sex: Female
  Weight: 72 kg

DRUGS (15)
  1. STELARA [Suspect]
     Indication: PSORIASIS
     Route: 058
     Dates: start: 20100422, end: 20101015
  2. PLAVIX [Concomitant]
     Route: 048
  3. TORSEMIDE [Concomitant]
     Route: 048
  4. BELOC ZOK [Concomitant]
     Route: 048
  5. FALITHROM [Concomitant]
  6. DEKRISTOL [Concomitant]
     Route: 065
  7. DELIX [Concomitant]
     Route: 048
  8. ASPIRIN [Concomitant]
     Route: 048
  9. BLOPRESS [Concomitant]
     Route: 048
  10. SIMVASTATIN [Concomitant]
     Route: 048
  11. CARMEN [Concomitant]
     Route: 048
  12. SODIUM BICARBONATE [Concomitant]
     Route: 048
  13. SIFROL [Concomitant]
     Route: 048
  14. PANTOZOL [Concomitant]
     Route: 048
  15. FERROUS SULFATE TAB [Concomitant]
     Route: 048

REACTIONS (2)
  - MYOCARDIAL INFARCTION [None]
  - RECTAL HAEMORRHAGE [None]
